FAERS Safety Report 12693797 (Version 2)
Quarter: 2017Q2

REPORT INFORMATION
  Report Type: Spontaneous
  Country: FR (occurrence: FR)
  Receive Date: 20160829
  Receipt Date: 20170417
  Transmission Date: 20170830
  Serious: Yes (Other)
  Sender: FDA-Public Use
  Company Number: FR-SA-2016SA153397

PATIENT
  Age: 68 Year
  Sex: Female

DRUGS (13)
  1. PLAVIX [Suspect]
     Active Substance: CLOPIDOGREL BISULFATE
     Indication: THROMBOSIS PROPHYLAXIS
     Route: 048
     Dates: end: 20160726
  2. NATISPRAY [Concomitant]
     Active Substance: NITROGLYCERIN
     Route: 065
  3. CRESTOR [Concomitant]
     Active Substance: ROSUVASTATIN CALCIUM
     Dosage: IN EVENING
     Route: 065
  4. APIDRA [Concomitant]
     Active Substance: INSULIN GLULISINE
     Dosage: MORNING, NOON AND EVENING
     Route: 065
  5. TENORMIN [Concomitant]
     Active Substance: ATENOLOL
     Dosage: IN THE MORNING
     Route: 065
  6. LASILIX [Concomitant]
     Active Substance: FUROSEMIDE
     Dosage: 500 ON THE DAYS WITHOUT DIALYSIS
     Route: 065
  7. LEXOMIL [Concomitant]
     Active Substance: BROMAZEPAM
     Dosage: IN EVENING
     Route: 065
  8. LANTUS [Concomitant]
     Active Substance: INSULIN GLARGINE
     Dosage: IN MORNING
     Route: 065
  9. RENAGEL [Concomitant]
     Active Substance: SEVELAMER HYDROCHLORIDE
     Dosage: IN NOON AND EVENING
     Route: 065
  10. CACIT [Concomitant]
     Active Substance: CALCIUM\VITAMIN D
     Dosage: 1000MG
     Route: 065
  11. INEXIUM [Concomitant]
     Active Substance: ESOMEPRAZOLE
     Dosage: IN EVENING
     Route: 065
  12. GLYCERYL TRINITRATE [Concomitant]
     Active Substance: NITROGLYCERIN
     Route: 065
  13. LEVOTHYROX [Concomitant]
     Active Substance: LEVOTHYROXINE
     Dosage: IN MORNING
     Route: 065

REACTIONS (1)
  - Thrombocytopenia [Recovered/Resolved]

NARRATIVE: CASE EVENT DATE: 20160726
